FAERS Safety Report 21073443 (Version 1)
Quarter: 2022Q3

REPORT INFORMATION
  Report Type: Report from Study
  Country: IT (occurrence: IT)
  Receive Date: 20220713
  Receipt Date: 20220713
  Transmission Date: 20221026
  Serious: Yes (Other)
  Sender: FDA-Public Use
  Company Number: IT-SUN PHARMACEUTICAL INDUSTRIES LTD-2022R1-344108

PATIENT
  Age: 61 Year
  Sex: Female

DRUGS (1)
  1. CAPECITABINE [Suspect]
     Active Substance: CAPECITABINE
     Indication: Cardiac stress test
     Dosage: UNK
     Route: 065

REACTIONS (4)
  - Electrocardiogram ST segment elevation [Unknown]
  - Ventricular extrasystoles [Unknown]
  - Angina pectoris [Unknown]
  - Abdominal pain upper [Unknown]
